FAERS Safety Report 7084463-1 (Version None)
Quarter: 2010Q4

REPORT INFORMATION
  Report Type: 
  Country: None (occurrence: None)
  Receive Date: 20101104
  Receipt Date: 20101029
  Transmission Date: 20110411
  Serious: No
  Sender: FDA-Public Use
  Company Number: US-PFIZER INC-2010138328

PATIENT
  Sex: Male

DRUGS (5)
  1. VIAGRA [Suspect]
     Indication: ERECTILE DYSFUNCTION
     Dosage: UNK, AS NEEDED
     Route: 048
     Dates: start: 20080101, end: 20100101
  2. SIMVASTATIN [Concomitant]
     Indication: BLOOD CHOLESTEROL INCREASED
     Dosage: 20 MG, 1X/DAY
     Dates: start: 20050101
  3. METFORMIN [Concomitant]
     Indication: DIABETES MELLITUS
     Dosage: 1000 MG, 2X/DAY
     Dates: start: 20050101
  4. ACTOS [Concomitant]
     Indication: DIABETES MELLITUS
     Dosage: 45 MG, UNK
  5. ACETYLSALICYLIC ACID [Concomitant]
     Indication: PAIN
     Dosage: 81 MG, 1X/DAY
     Route: 048

REACTIONS (1)
  - OCULAR HYPERAEMIA [None]
